FAERS Safety Report 5738797-0 (Version None)
Quarter: 2008Q2

REPORT INFORMATION
  Report Type: 
  Country: None (occurrence: None)
  Receive Date: 20080515
  Receipt Date: 20080305
  Transmission Date: 20081010
  Serious: No
  Sender: FDA-Public Use
  Company Number: A0713553A

PATIENT
  Age: 80 Year
  Sex: Male

DRUGS (3)
  1. VERAMYST [Suspect]
     Indication: SINUS DISORDER
     Route: 045
     Dates: start: 20071102, end: 20071102
  2. ZYRTEC [Concomitant]
  3. COD LIVER OIL [Concomitant]

REACTIONS (2)
  - BLOOD PRESSURE INCREASED [None]
  - FEELING HOT [None]
